FAERS Safety Report 25399584 (Version 1)
Quarter: 2025Q2

REPORT INFORMATION
  Report Type: Spontaneous
  Country: DE (occurrence: DE)
  Receive Date: 20250605
  Receipt Date: 20250605
  Transmission Date: 20250717
  Serious: Yes (Hospitalization)
  Sender: TEVA
  Company Number: DE-TEVA-VS-3337645

PATIENT
  Age: 77 Year
  Sex: Female

DRUGS (2)
  1. ECHINACEA [Suspect]
     Active Substance: ECHINACEA, UNSPECIFIED
     Indication: Nasopharyngitis
     Route: 065
  2. METOPROLOL [Suspect]
     Active Substance: METOPROLOL
     Indication: Heart rate normal
     Route: 065

REACTIONS (2)
  - Atrial fibrillation [Unknown]
  - Drug interaction [Unknown]
